FAERS Safety Report 15652535 (Version 1)
Quarter: 2018Q4

REPORT INFORMATION
  Report Type: Spontaneous
  Country: US (occurrence: US)
  Receive Date: 20181123
  Receipt Date: 20181123
  Transmission Date: 20190205
  Serious: No
  Sender: FDA-Public Use
  Company Number: US-FOUNDATIONCONSUMERHC-2018-US-016344

PATIENT
  Age: 23 Year
  Sex: Female

DRUGS (1)
  1. PLAN B ONE-STEP [Suspect]
     Active Substance: LEVONORGESTREL
     Indication: POST COITAL CONTRACEPTION
     Dosage: 1.5 MG X 1 DOSE AROUND 09/09/18 AND 1.5 MG X 1 DOSE ON 09/17/18
     Route: 048
     Dates: start: 20180909, end: 20180917

REACTIONS (3)
  - Vaginal haemorrhage [Not Recovered/Not Resolved]
  - Menorrhagia [Recovered/Resolved]
  - Menstrual disorder [Recovered/Resolved]

NARRATIVE: CASE EVENT DATE: 20180909
